FAERS Safety Report 17188112 (Version 2)
Quarter: 2020Q1

REPORT INFORMATION
  Report Type: Report from Study
  Country: US (occurrence: US)
  Receive Date: 20191221
  Receipt Date: 20200118
  Transmission Date: 20200409
  Serious: No
  Sender: FDA-Public Use
  Company Number: NVSC2019US030137

PATIENT
  Sex: Female
  Weight: 116.37 kg

DRUGS (1)
  1. ILARIS [Suspect]
     Active Substance: CANAKINUMAB
     Indication: AUTOINFLAMMATORY DISEASE
     Dosage: 150 MG (EVERY 21 DAYS)
     Route: 065

REACTIONS (2)
  - Pain [Unknown]
  - Rash [Unknown]
